FAERS Safety Report 16249694 (Version 1)
Quarter: 2019Q2

REPORT INFORMATION
  Report Type: Spontaneous
  Country: DE (occurrence: DE)
  Receive Date: 20190429
  Receipt Date: 20190429
  Transmission Date: 20190711
  Serious: Yes (Other)
  Sender: FDA-Public Use
  Company Number: PHHY2019DE095090

PATIENT
  Age: 34 Year
  Sex: Male

DRUGS (1)
  1. INTERFERON BETA-1B [Suspect]
     Active Substance: INTERFERON BETA-1B
     Indication: MULTIPLE SCLEROSIS
     Dosage: 250 UG, BID (250 UG, QOD)
     Route: 058
     Dates: start: 20110504, end: 20181201

REACTIONS (9)
  - Multiple sclerosis relapse [Recovered/Resolved]
  - Visual acuity reduced [Unknown]
  - Multiple sclerosis relapse [Unknown]
  - Motor dysfunction [Recovered/Resolved]
  - Coordination abnormal [Unknown]
  - Hemianaesthesia [Recovered/Resolved]
  - Multiple sclerosis relapse [Unknown]
  - Hemianaesthesia [Unknown]
  - Dizziness [Recovered/Resolved]

NARRATIVE: CASE EVENT DATE: 20170808
